FAERS Safety Report 4467928-8 (Version None)
Quarter: 2004Q4

REPORT INFORMATION
  Report Type: 
  Country: None (occurrence: None)
  Receive Date: 20041004
  Receipt Date: 20040921
  Transmission Date: 20050328
  Serious: Yes (Hospitalization)
  Sender: FDA-Public Use
  Company Number: HQWYE257424SEP04

PATIENT
  Age: 55 Year
  Sex: Male

DRUGS (7)
  1. RAPAMUNE [Suspect]
     Indication: PROPHYLAXIS AGAINST TRANSPLANT REJECTION
     Dosage: 5 MG 1X PER 1 DAY
     Route: 048
     Dates: start: 20031222
  2. AMLODIPINE [Concomitant]
  3. ATENOLOL [Concomitant]
  4. FLUVASTATIN (FLUVASTATIN) [Concomitant]
  5. MYCOPHENOLATE MOFETIL (MYCOPHENOLATE MOFETIL) [Concomitant]
  6. CALCIUM CARBONATE (CALCIUM CARBONATE) [Concomitant]
  7. METHYLPREDNISOLONE [Concomitant]

REACTIONS (5)
  - IMMUNOSUPPRESSION [None]
  - LUNG DISORDER [None]
  - LUNG INFILTRATION [None]
  - PYREXIA [None]
  - RALES [None]
